FAERS Safety Report 15122562 (Version 3)
Quarter: 2018Q4

REPORT INFORMATION
  Report Type: Report from Study
  Country: DE (occurrence: DE)
  Receive Date: 20180709
  Receipt Date: 20181002
  Transmission Date: 20190204
  Serious: Yes (Death, Hospitalization)
  Sender: FDA-Public Use
  Company Number: PHHY2018DE040089

PATIENT
  Sex: Female

DRUGS (11)
  1. METOPROLOL SUCC CT [Concomitant]
     Active Substance: METOPROLOL SUCCINATE
     Indication: HYPERTENSION
     Dosage: 95 MG, UNK
     Route: 065
     Dates: start: 20170602, end: 20180618
  2. AMIODARONE [Concomitant]
     Active Substance: AMIODARONE
     Indication: PRODUCT USED FOR UNKNOWN INDICATION
     Dosage: 200 MG, QD
     Route: 048
     Dates: start: 20071207
  3. ALDACTONE [Suspect]
     Active Substance: SPIRONOLACTONE
     Indication: CARDIAC FAILURE
     Dosage: 25 OT, QD
     Route: 048
     Dates: start: 20170321, end: 201806
  4. ALDACTONE [Suspect]
     Active Substance: SPIRONOLACTONE
     Indication: OEDEMA
     Dosage: UNK
     Route: 048
     Dates: start: 201806
  5. ENTRESTO [Suspect]
     Active Substance: SACUBITRIL\VALSARTAN
     Indication: CARDIAC FAILURE CHRONIC
     Dosage: 48/52 MG, QD
     Route: 048
     Dates: start: 20170321, end: 20180618
  6. TORASEMIDE [Suspect]
     Active Substance: TORSEMIDE
     Indication: OEDEMA
     Dosage: UNK
     Route: 048
     Dates: start: 201806
  7. ENTRESTO [Suspect]
     Active Substance: SACUBITRIL\VALSARTAN
     Indication: OEDEMA
  8. TORASEMIDE [Suspect]
     Active Substance: TORSEMIDE
     Indication: CARDIAC FAILURE
     Dosage: 100 MG, QD
     Route: 048
     Dates: start: 20171214, end: 201806
  9. METOPROLOL SUCC CT [Concomitant]
     Active Substance: METOPROLOL SUCCINATE
     Indication: CONGESTIVE CARDIOMYOPATHY
     Dosage: 47.5 MG, QD
     Route: 048
     Dates: start: 20180618
  10. ELIQUIS [Concomitant]
     Active Substance: APIXABAN
     Indication: ATRIAL FIBRILLATION
     Dosage: 5 MG, QD
     Route: 048
     Dates: start: 20180524
  11. PANTOPRAZOLE [Concomitant]
     Active Substance: PANTOPRAZOLE
     Indication: PRODUCT USED FOR UNKNOWN INDICATION
     Dosage: 2 DF, QD
     Route: 048
     Dates: start: 20180618

REACTIONS (8)
  - Urinary tract infection [Fatal]
  - Acute kidney injury [Recovering/Resolving]
  - C-reactive protein increased [Fatal]
  - Multimorbidity [Fatal]
  - General physical health deterioration [Fatal]
  - Inflammatory marker increased [Fatal]
  - Herpes virus infection [Fatal]
  - Urosepsis [Fatal]

NARRATIVE: CASE EVENT DATE: 201806
